FAERS Safety Report 16935067 (Version 2)
Quarter: 2019Q4

REPORT INFORMATION
  Report Type: Spontaneous
  Country: US (occurrence: US)
  Receive Date: 20191018
  Receipt Date: 20191209
  Transmission Date: 20200122
  Serious: No
  Sender: FDA-Public Use
  Company Number: US-PFIZER INC-2018208952

PATIENT
  Age: 60 Year
  Sex: Female

DRUGS (2)
  1. LYRICA [Suspect]
     Active Substance: PREGABALIN
     Dosage: 3 DF, DAILY
  2. LYRICA [Suspect]
     Active Substance: PREGABALIN
     Dosage: 2 DF, DAILY

REACTIONS (2)
  - Pain [Unknown]
  - Intentional product use issue [Unknown]
